FAERS Safety Report 25462054 (Version 1)
Quarter: 2025Q2

REPORT INFORMATION
  Report Type: Spontaneous
  Country: US (occurrence: None)
  Receive Date: 20250619
  Receipt Date: 20250619
  Transmission Date: 20250717
  Serious: Yes (Hospitalization)
  Sender: FDA-CTU
  Company Number: None

PATIENT
  Age: 64 Year
  Sex: Female

DRUGS (10)
  1. EVEROLIMUS [Suspect]
     Active Substance: EVEROLIMUS
     Indication: Renal transplant
     Dosage: FREQUENCY : TWICE A DAY;?
     Route: 048
  2. DARZALEX [Suspect]
     Active Substance: DARATUMUMAB
     Dates: start: 20240316
  3. atovaquone 750 mg/5mL suspension [Concomitant]
     Dates: start: 20240322
  4. AZATHIOPRINE [Concomitant]
     Active Substance: AZATHIOPRINE
     Dates: start: 20240316, end: 20250107
  5. valacyclovir 1 gram tablet [Concomitant]
     Dates: start: 20240316, end: 20240911
  6. ENVARSUS XR [Concomitant]
     Active Substance: TACROLIMUS
     Dates: start: 20240316, end: 20240805
  7. OMEPRAZOLE [Concomitant]
     Active Substance: OMEPRAZOLE
     Dates: start: 20240316, end: 20240717
  8. dapsone 100 mg tablet [Concomitant]
     Dates: start: 20240316, end: 20240418
  9. mycophenolic 180 mg DR tablet [Concomitant]
     Dates: start: 20240316, end: 20240409
  10. PREDNISONE [Concomitant]
     Active Substance: PREDNISONE

REACTIONS (1)
  - Transplant rejection [None]

NARRATIVE: CASE EVENT DATE: 20250605
